FAERS Safety Report 11178749 (Version 1)
Quarter: 2015Q2

REPORT INFORMATION
  Report Type: Spontaneous
  Country: BR (occurrence: BR)
  Receive Date: 20150610
  Receipt Date: 20150610
  Transmission Date: 20150821
  Serious: Yes (Other)
  Sender: FDA-Public Use
  Company Number: PHHY2015BR061713

PATIENT
  Age: 91 Year
  Sex: Female
  Weight: 68 kg

DRUGS (12)
  1. EXELON PATCH [Suspect]
     Active Substance: RIVASTIGMINE
     Dosage: 13.3 MG (EXELON PATCH 15), QD (1 PATCH PER DAY)
     Route: 062
  2. EXELON PATCH [Suspect]
     Active Substance: RIVASTIGMINE
     Indication: DEMENTIA ALZHEIMER^S TYPE
     Dosage: 4.6 MG (EXELON PATCH 5), UNK
     Route: 062
  3. QUETIAPINE [Concomitant]
     Active Substance: QUETIAPINE
     Indication: SEIZURE
     Dosage: 25 MG, UNK
     Route: 048
  4. EXELON PATCH [Suspect]
     Active Substance: RIVASTIGMINE
     Dosage: 0.5 DF, UNK (HALF PATCH CUT)
     Route: 062
  5. ATENOLOL. [Concomitant]
     Active Substance: ATENOLOL
     Indication: HYPERTENSION
     Dosage: 25 MG, UNK
     Route: 048
  6. ALOIS [Concomitant]
     Active Substance: MEMANTINE
     Indication: DEMENTIA ALZHEIMER^S TYPE
     Dosage: 10 MG, UNK
     Route: 048
  7. EXELON PATCH [Suspect]
     Active Substance: RIVASTIGMINE
     Dosage: 9.5 MG (EXELON PATCH 10), UNK
     Route: 062
  8. OMEPRAZOLE. [Concomitant]
     Active Substance: OMEPRAZOLE
     Indication: GASTRIC DISORDER
     Dosage: 40 MG, UNK
     Route: 048
  9. RIVOTRIL [Concomitant]
     Active Substance: CLONAZEPAM
     Indication: SEDATION
     Dosage: 0.5 MG, UNK
     Route: 048
  10. EUTIROX [Concomitant]
     Active Substance: LEVOTHYROXINE SODIUM
     Indication: THYROID DISORDER
     Dosage: 75 MG, UNK
     Route: 048
  11. PROLOPA [Concomitant]
     Active Substance: BENSERAZIDE\LEVODOPA
     Indication: PARKINSONISM
     Dosage: 1 DF, UNK
     Route: 048
  12. DEPURA [Concomitant]
     Active Substance: CHOLECALCIFEROL
     Indication: PRODUCT USED FOR UNKNOWN INDICATION
     Route: 048

REACTIONS (7)
  - Pruritus [Recovering/Resolving]
  - Urinary tract infection [Recovered/Resolved]
  - Fall [Recovered/Resolved]
  - Off label use [Unknown]
  - Urinary tract infection [Recovered/Resolved]
  - Irritability [Recovering/Resolving]
  - Erythema [Recovering/Resolving]

NARRATIVE: CASE EVENT DATE: 20140309
